FAERS Safety Report 5760767-7 (Version None)
Quarter: 2008Q2

REPORT INFORMATION
  Report Type: 
  Country: None (occurrence: None)
  Receive Date: 20080606
  Receipt Date: 20080529
  Transmission Date: 20081010
  Serious: Yes (Other)
  Sender: FDA-Public Use
  Company Number: PHBS2007BR13075

PATIENT
  Sex: Female
  Weight: 78 kg

DRUGS (2)
  1. RITALIN [Suspect]
     Indication: LEARNING DISORDER
     Dosage: 10 MG, 1 TABLET DAILY
     Dates: end: 20070730
  2. RITALIN [Concomitant]

REACTIONS (5)
  - ASTHENIA [None]
  - FEELING ABNORMAL [None]
  - HYPOAESTHESIA [None]
  - SYNCOPE [None]
  - TREMOR [None]
